FAERS Safety Report 20711837 (Version 1)
Quarter: 2022Q2

REPORT INFORMATION
  Report Type: Spontaneous
  Country: US (occurrence: US)
  Receive Date: 20220414
  Receipt Date: 20220414
  Transmission Date: 20220720
  Serious: No
  Sender: FDA-Public Use
  Company Number: US-PFIZER INC-202101029486

PATIENT
  Age: 52 Year
  Sex: Female
  Weight: 92.53 kg

DRUGS (2)
  1. CHANTIX [Suspect]
     Active Substance: VARENICLINE TARTRATE
     Indication: Smoking cessation therapy
     Dosage: 0.5 MG
     Dates: start: 2021, end: 202106
  2. CHANTIX [Suspect]
     Active Substance: VARENICLINE TARTRATE
     Dosage: 1 MG
     Dates: start: 2021, end: 202106

REACTIONS (6)
  - Recalled product administered [Unknown]
  - Vomiting [Unknown]
  - Nausea [Unknown]
  - Food allergy [Unknown]
  - Abnormal dreams [Unknown]
  - Abdominal discomfort [Unknown]

NARRATIVE: CASE EVENT DATE: 20210601
